FAERS Safety Report 18796831 (Version 1)
Quarter: 2021Q1

REPORT INFORMATION
  Report Type: Spontaneous
  Country: US (occurrence: US)
  Receive Date: 20210128
  Receipt Date: 20210128
  Transmission Date: 20210419
  Serious: No
  Sender: FDA-Public Use
  Company Number: US-BIOGEN-2021BI00972076

PATIENT
  Sex: Female

DRUGS (8)
  1. ACETOAMINOPHEN [Concomitant]
     Active Substance: ACETAMINOPHEN
     Route: 065
  2. TYLENOL [Concomitant]
     Active Substance: ACETAMINOPHEN
     Route: 065
  3. TECFIDERA [Suspect]
     Active Substance: DIMETHYL FUMARATE
     Indication: MULTIPLE SCLEROSIS
     Route: 065
  4. NORGESTIMATE? ETHINYL ESTRADIOL [Concomitant]
     Route: 065
  5. VIT D?VIT E SAFFLOWER OIL [Concomitant]
     Route: 065
  6. BIOTIN [Concomitant]
     Active Substance: BIOTIN
     Route: 065
  7. SOLU?MEDROL [Concomitant]
     Active Substance: METHYLPREDNISOLONE SODIUM SUCCINATE
     Route: 065
  8. BENADRYL [Concomitant]
     Active Substance: DIPHENHYDRAMINE HYDROCHLORIDE
     Route: 065

REACTIONS (1)
  - Treatment failure [Unknown]
